FAERS Safety Report 8990434 (Version 1)
Quarter: 2012Q4

REPORT INFORMATION
  Report Type: 
  Country: CN (occurrence: CN)
  Receive Date: 20121228
  Receipt Date: 20121228
  Transmission Date: 20130627
  Serious: Yes (Other)
  Sender: FDA-Public Use
  Company Number: CN-JNJFOC-20121212443

PATIENT

DRUGS (1)
  1. TOPIRAMATE [Suspect]
     Indication: EPILEPSY
     Route: 048

REACTIONS (19)
  - Drug ineffective [Unknown]
  - Calcinosis [Unknown]
  - Memory impairment [Unknown]
  - Extrapyramidal disorder [Unknown]
  - Mental disorder [Unknown]
  - Asthenia [Unknown]
  - Haematology test abnormal [Unknown]
  - Gastrointestinal disorder [Unknown]
  - Aphasia [Unknown]
  - Somnolence [Unknown]
  - Dizziness [Unknown]
  - Headache [Unknown]
  - Weight decreased [Unknown]
  - Rash [Unknown]
  - Slow response to stimuli [Unknown]
  - Decreased appetite [Unknown]
  - Menstrual disorder [Unknown]
  - Alopecia [Unknown]
  - Hypohidrosis [Unknown]
